FAERS Safety Report 4619249-8 (Version None)
Quarter: 2005Q1

REPORT INFORMATION
  Report Type: 
  Country: None (occurrence: None)
  Receive Date: 20050325
  Receipt Date: 20050318
  Transmission Date: 20050727
  Serious: Yes (Other)
  Sender: FDA-Public Use
  Company Number: US-BRISTOL-MYERS SQUIBB COMPANY-12903613

PATIENT
  Age: 50 Year
  Sex: Male
  Weight: 136 kg

DRUGS (4)
  1. GLUCOVANCE [Suspect]
  2. FLECAINIDE ACETATE [Concomitant]
  3. LISINOPRIL [Concomitant]
  4. HYDROCHLOROTHIAZIDE [Concomitant]

REACTIONS (3)
  - DIZZINESS [None]
  - HYPOAESTHESIA [None]
  - PARAESTHESIA [None]
